FAERS Safety Report 17356392 (Version 1)
Quarter: 2020Q1

REPORT INFORMATION
  Report Type: Spontaneous
  Country: US (occurrence: US)
  Receive Date: 20200116
  Receipt Date: 20200116
  Transmission Date: 20200409
  Serious: Yes (Hospitalization)
  Sender: FDA-Public Use
  Company Number: None

PATIENT
  Age: 8 Year
  Sex: Male
  Weight: 26.7 kg

DRUGS (5)
  1. METHOTREXATE. [Suspect]
     Active Substance: METHOTREXATE
     Dates: end: 20200113
  2. CYTARABINE. [Suspect]
     Active Substance: CYTARABINE
     Dates: end: 20191216
  3. DEXAMETHASONE. [Suspect]
     Active Substance: DEXAMETHASONE
     Dates: end: 20200112
  4. VINCRISTINE SULFATE. [Suspect]
     Active Substance: VINCRISTINE SULFATE
     Dates: end: 20200106
  5. ONCASPAR [Suspect]
     Active Substance: PEGASPARGASE
     Dates: end: 20191219

REACTIONS (8)
  - Pyrexia [None]
  - Tachycardia [None]
  - Cough [None]
  - Oxygen saturation decreased [None]
  - Asthenia [None]
  - Tachypnoea [None]
  - Musculoskeletal pain [None]
  - Influenza [None]

NARRATIVE: CASE EVENT DATE: 20200114
